FAERS Safety Report 22253896 (Version 2)
Quarter: 2023Q2

REPORT INFORMATION
  Report Type: Report from Study
  Country: US (occurrence: US)
  Receive Date: 20230426
  Receipt Date: 20230503
  Transmission Date: 20230721
  Serious: No
  Sender: FDA-Public Use
  Company Number: US-ABBVIE-4303225

PATIENT
  Age: 71 Year
  Sex: Male

DRUGS (45)
  1. RINVOQ [Suspect]
     Active Substance: UPADACITINIB
     Indication: Rheumatoid arthritis
     Route: 048
     Dates: start: 20220215
  2. METOPROLOL SUCCINATE [Concomitant]
     Active Substance: METOPROLOL SUCCINATE
     Indication: Product used for unknown indication
     Dosage: FREQUENCY TEXT: EVERY DAY
     Route: 048
     Dates: start: 20220520
  3. BYDUREON BCISE [Concomitant]
     Active Substance: EXENATIDE
     Indication: Product used for unknown indication
     Dosage: 2 MG/0.85 ML?FREQUENCY TEXT: ONCE A WEEK
     Route: 058
     Dates: start: 20220328
  4. PROAIR HFA [Concomitant]
     Active Substance: ALBUTEROL SULFATE
     Indication: Product used for unknown indication
     Route: 055
     Dates: start: 20211208
  5. HUMALOG [Concomitant]
     Active Substance: INSULIN LISPRO
     Indication: Product used for unknown indication
     Dates: start: 20220412
  6. ZANAFLEX [Concomitant]
     Active Substance: TIZANIDINE HYDROCHLORIDE
     Indication: Product used for unknown indication
     Dosage: FREQUENCY TEXT: EVERY 6 HOURS
     Dates: start: 20220115
  7. HYDROXYCHLOROQUINE [Concomitant]
     Active Substance: HYDROXYCHLOROQUINE
     Indication: Product used for unknown indication
     Route: 048
     Dates: start: 20220411
  8. GABAPENTIN 2K [Concomitant]
     Indication: Product used for unknown indication
     Route: 048
     Dates: start: 20220421
  9. GABAPENTIN 2K [Concomitant]
     Indication: Product used for unknown indication
     Route: 048
     Dates: start: 20220307
  10. ASPIRIN [Concomitant]
     Active Substance: ASPIRIN
     Indication: Product used for unknown indication
     Route: 048
     Dates: start: 20201203
  11. Bdn [Concomitant]
     Indication: Product used for unknown indication
     Dosage: FREQUENCY TEXT: EVERY 2 WEEK
     Dates: start: 20211215
  12. Bdn [Concomitant]
     Indication: Product used for unknown indication
     Dates: start: 20190523
  13. TAMSULOSIN [Concomitant]
     Active Substance: TAMSULOSIN
     Indication: Product used for unknown indication
     Dates: start: 20221213
  14. DULOXETINE [Concomitant]
     Active Substance: DULOXETINE
     Indication: Product used for unknown indication
     Dosage: FREQUENCY TEXT: DELAY RELEASE
     Dates: start: 20220417
  15. FAMOTIDINE AN [Concomitant]
     Indication: Product used for unknown indication
     Route: 048
     Dates: start: 20220115
  16. METFORMIN [Concomitant]
     Active Substance: METFORMIN HYDROCHLORIDE
     Indication: Product used for unknown indication
     Dates: start: 20210927
  17. METFORMIN [Concomitant]
     Active Substance: METFORMIN HYDROCHLORIDE
     Indication: Product used for unknown indication
     Route: 048
     Dates: start: 20220126
  18. CALCIUM CARBONATE\VITAMIN D [Concomitant]
     Active Substance: CALCIUM CARBONATE\VITAMIN D
     Indication: Product used for unknown indication
     Dosage: FREQUENCY TEXT: TWO TIMES A DAY
     Dates: start: 20220115
  19. AMLODIPINE [Concomitant]
     Active Substance: AMLODIPINE BESYLATE
     Indication: Product used for unknown indication
     Dosage: FREQUENCY TEXT: EVERY DAY
     Route: 048
  20. CYANOCOBALAMIN\DEXPANTHENOL\NIACINAMIDE\PYRIDOXINE HYDROCHLORIDE\RIBOF [Concomitant]
     Active Substance: CYANOCOBALAMIN\DEXPANTHENOL\NIACINAMIDE\PYRIDOXINE HYDROCHLORIDE\RIBOFLAVIN 5^-PHOSPHATE SODIUM\THIA
     Indication: Product used for unknown indication
     Dosage: FORM STRENGTH: 200 MILLIGRAM
     Route: 048
     Dates: start: 20220115
  21. TESTOSTERONE CYPIONATE [Concomitant]
     Active Substance: TESTOSTERONE CYPIONATE
     Indication: Product used for unknown indication
     Route: 048
     Dates: start: 20211213
  22. BACLOFEN [Concomitant]
     Active Substance: BACLOFEN
     Indication: Product used for unknown indication
     Route: 048
     Dates: start: 20220426
  23. METHYLPREDNISOLONE [Concomitant]
     Active Substance: METHYLPREDNISOLONE
     Indication: Product used for unknown indication
     Dosage: - FREQUENCY TEXT: 4 TIME A DAY
     Route: 048
     Dates: start: 20220307
  24. ENTRESTO [Concomitant]
     Active Substance: SACUBITRIL\VALSARTAN
     Indication: Product used for unknown indication
     Dosage: 97 MG-103 MG? FREQUENCY TEXT: TWICE A DAY
     Dates: start: 20220223
  25. FISH OIL [Concomitant]
     Active Substance: FISH OIL
     Indication: Product used for unknown indication
     Route: 048
     Dates: start: 20220115
  26. ISOSORBIDE MONONITRATE [Concomitant]
     Active Substance: ISOSORBIDE MONONITRATE
     Indication: Product used for unknown indication
     Route: 048
     Dates: start: 20220309
  27. FOLIC ACID [Concomitant]
     Active Substance: FOLIC ACID
     Indication: Product used for unknown indication
     Dosage: FREQUENCY TEXT: ONE TIME DAILY
     Dates: start: 20220515
  28. CHONDROITIN SULFATE A\GLUCOSAMINE [Concomitant]
     Active Substance: CHONDROITIN SULFATE A\GLUCOSAMINE
     Indication: Product used for unknown indication
     Dosage: 1,500 MG-400 UNIT-100
     Dates: start: 20220115
  29. REPATHA [Concomitant]
     Active Substance: EVOLOCUMAB
     Indication: Product used for unknown indication
     Dosage: FREQUENCY TEXT: EVERY TWO WEEKS
     Route: 058
     Dates: start: 20220425
  30. ACETAMINOPHEN [Concomitant]
     Active Substance: ACETAMINOPHEN
     Indication: Product used for unknown indication
     Route: 048
  31. RELION HUMULIN [Concomitant]
     Indication: Product used for unknown indication
     Dosage: FREQUENCY TEXT: THREE TIMES DAILY
     Route: 055
     Dates: start: 20201103
  32. DIAZEPAM D [Concomitant]
     Indication: Product used for unknown indication
     Dosage: FREQUENCY TEXT: 45 MINUTE PRIOR TO EXAM
     Dates: start: 20220427
  33. CLOPIDOGREL [Concomitant]
     Active Substance: CLOPIDOGREL BISULFATE
     Indication: Product used for unknown indication
     Dosage: FORM STRENGTH: 75 MILLIGRAM
     Route: 048
     Dates: start: 20220430
  34. VITAMIN C [Concomitant]
     Active Substance: ASCORBIC ACID
     Indication: Product used for unknown indication
     Dosage: FREQUENCY TEXT: TWICE A DAY
     Route: 048
     Dates: start: 20220115
  35. NYSTATIN [Concomitant]
     Active Substance: NYSTATIN
     Indication: Product used for unknown indication
     Dosage: 100,000 GRAM
     Route: 061
     Dates: start: 20220503
  36. HYDROCODONE [Concomitant]
     Active Substance: HYDROCODONE
     Indication: Product used for unknown indication
     Route: 048
     Dates: start: 20220425
  37. STIOLTO RESPIMAT [Concomitant]
     Active Substance: OLODATEROL HYDROCHLORIDE\TIOTROPIUM BROMIDE MONOHYDRATE
     Indication: Product used for unknown indication
     Dosage: FREQUENCY TEXT: 2.5 MCG-2.5 MCG/
     Dates: start: 20220311
  38. MS CONTIN [Concomitant]
     Active Substance: MORPHINE SULFATE
     Indication: Product used for unknown indication
     Dosage: FREQUENCY TEXT: EVERY 12 HOUR
     Route: 048
     Dates: start: 20220115
  39. Vitamin D3 Ol [Concomitant]
     Indication: Product used for unknown indication
     Dosage: FREQUENCY TEXT: 3 TIMES A DAY
     Route: 048
     Dates: start: 20220115
  40. HERBALS\TURMERIC [Concomitant]
     Active Substance: HERBALS\TURMERIC
     Indication: Product used for unknown indication
     Dosage: 15000 MG?FREQUENCY TEXT: THREE TIMES A DAY
     Dates: start: 20220115
  41. ALLOPURINOL [Concomitant]
     Active Substance: ALLOPURINOL
     Indication: Product used for unknown indication
     Dosage: FREQUENCY TEXT: 1 TIME DAILY
     Route: 048
  42. MORPHINE [Concomitant]
     Active Substance: MORPHINE
     Indication: Product used for unknown indication
     Dosage: FREQUENCY TEXT: EVERY 8 HOURS
     Route: 048
     Dates: start: 20220425
  43. ANORO ELLIPTA [Concomitant]
     Active Substance: UMECLIDINIUM BROMIDE\VILANTEROL TRIFENATATE
     Indication: Product used for unknown indication
     Dosage: 62.5 MCG?FREQUENCY TEXT: ONCE DAILY
     Route: 048
     Dates: start: 20221005
  44. FENOFIBRATE S [Concomitant]
     Indication: Product used for unknown indication
     Route: 048
     Dates: start: 20220304
  45. TORSEMIDE [Concomitant]
     Active Substance: TORSEMIDE
     Indication: Product used for unknown indication
     Dosage: 200 MG

REACTIONS (2)
  - Chronic obstructive pulmonary disease [Unknown]
  - Gait disturbance [Unknown]

NARRATIVE: CASE EVENT DATE: 20220215
